FAERS Safety Report 4394000-8 (Version None)
Quarter: 2004Q3

REPORT INFORMATION
  Report Type: 
  Country: None (occurrence: None)
  Receive Date: 20040701
  Receipt Date: 20040618
  Transmission Date: 20050211
  Serious: Yes (Hospitalization, Other)
  Sender: FDA-Public Use
  Company Number: US-JNJFOC-20040404182

PATIENT
  Age: 17 Year
  Sex: Female

DRUGS (6)
  1. REMICADE [Suspect]
     Indication: CROHN'S DISEASE
     Dosage: 300 MG, INTRAVENOUS
     Route: 042
     Dates: start: 20030916
  2. REMICADE [Suspect]
     Indication: CROHN'S DISEASE
     Dosage: 300 MG, INTRAVENOUS
     Route: 042
     Dates: start: 20031114
  3. REMICADE [Suspect]
     Indication: CROHN'S DISEASE
     Dosage: 300 MG, INTRAVENOUS
     Route: 042
     Dates: start: 20040225
  4. REMICADE [Suspect]
  5. REMICADE [Suspect]
  6. TYLENOL [Concomitant]

REACTIONS (6)
  - ALANINE AMINOTRANSFERASE INCREASED [None]
  - ASPARTATE AMINOTRANSFERASE INCREASED [None]
  - LUPUS-LIKE SYNDROME [None]
  - NAUSEA [None]
  - URINARY TRACT INFECTION [None]
  - VOMITING [None]
